FAERS Safety Report 14756081 (Version 1)
Quarter: 2018Q2

REPORT INFORMATION
  Report Type: Spontaneous
  Country: DK (occurrence: DK)
  Receive Date: 20180413
  Receipt Date: 20180413
  Transmission Date: 20180711
  Serious: Yes (Other)
  Sender: FDA-Public Use
  Company Number: DK-ALKEM LABORATORIES LIMITED-DK-ALKEM-2017-01250

PATIENT

DRUGS (1)
  1. QUETIAPINE FUMARATE. [Suspect]
     Active Substance: QUETIAPINE FUMARATE
     Indication: PRODUCT USED FOR UNKNOWN INDICATION
     Dosage: 50 TO 800 MG DAILY
     Route: 065

REACTIONS (1)
  - Electrocardiogram QT prolonged [Unknown]
